FAERS Safety Report 10442298 (Version 1)
Quarter: 2014Q3

REPORT INFORMATION
  Report Type: Spontaneous
  Country: US (occurrence: None)
  Receive Date: 20140908
  Receipt Date: 20140908
  Transmission Date: 20150326
  Serious: Yes (Other)
  Sender: FDA-Public Use
  Company Number: NSR_01630_2014

PATIENT
  Age: 19 Year
  Sex: Female

DRUGS (1)
  1. BACLOFEN. [Suspect]
     Active Substance: BACLOFEN
     Indication: MUSCLE SPASTICITY
     Route: 048

REACTIONS (7)
  - Toxicity to various agents [None]
  - Headache [None]
  - Idiosyncratic drug reaction [None]
  - Chest pain [None]
  - Speech disorder [None]
  - Hiccups [None]
  - Muscle fatigue [None]
